FAERS Safety Report 19863609 (Version 3)
Quarter: 2021Q4

REPORT INFORMATION
  Report Type: Report from Study
  Country: TR (occurrence: TR)
  Receive Date: 20210922
  Receipt Date: 20211212
  Transmission Date: 20220303
  Serious: Yes (Hospitalization)
  Sender: FDA-Public Use
  Company Number: TR-ABBVIE-21K-161-3768996-00

PATIENT
  Age: 64 Year
  Sex: Female

DRUGS (7)
  1. CARBIDOPA\LEVODOPA [Suspect]
     Active Substance: CARBIDOPA\LEVODOPA
     Indication: Parkinson^s disease
     Dosage: MORNING DOSE (ML): 8.00, CONTINIOUS DOSE (ML): 5.30, EXTRA DOSE (ML): 1.50.
     Route: 050
     Dates: start: 20200316, end: 20210209
  2. CARBIDOPA\LEVODOPA [Suspect]
     Active Substance: CARBIDOPA\LEVODOPA
     Dosage: MORNING DOSE (ML): 6.00, CONTINIOUS DOSE (ML): 4.30, EXTRA DOSE (ML): 1.50.
     Route: 050
     Dates: start: 20210209, end: 20210211
  3. CARBIDOPA\LEVODOPA [Suspect]
     Active Substance: CARBIDOPA\LEVODOPA
     Dosage: MORNING DOSE (ML): 5.50 CONTINUOUS DOSE (ML): 4.70 EXTRA DOSE(ML): 1.50
     Route: 050
     Dates: start: 20210211, end: 20210715
  4. CARBIDOPA\LEVODOPA [Suspect]
     Active Substance: CARBIDOPA\LEVODOPA
     Dosage: MORNING DOSE (ML): 5.50 CONTINUOUS DOSE (ML): 4.70 EXTRA DOSE (ML): 1.50
     Route: 050
     Dates: start: 20210903, end: 20211206
  5. CARBIDOPA\LEVODOPA [Suspect]
     Active Substance: CARBIDOPA\LEVODOPA
     Dosage: MORNING DOSE (ML): 5.50 CONTINIOUS DOSE (ML): 5.10 EXTRA DOSE?(ML): 1.50
     Route: 050
     Dates: start: 20211206
  6. DOPADEX SR [Concomitant]
     Indication: Parkinson^s disease
     Route: 048
  7. PRAMIPEXOLE DIHYDROCHLORIDE [Concomitant]
     Active Substance: PRAMIPEXOLE DIHYDROCHLORIDE
     Indication: Parkinson^s disease
     Route: 048
     Dates: start: 20210910, end: 20210913

REACTIONS (9)
  - Dyskinesia [Not Recovered/Not Resolved]
  - Gait disturbance [Not Recovered/Not Resolved]
  - Speech disorder [Recovering/Resolving]
  - Disorientation [Recovered/Resolved]
  - Decreased appetite [Not Recovered/Not Resolved]
  - Emotional disorder [Not Recovered/Not Resolved]
  - Dysphagia [Recovering/Resolving]
  - COVID-19 [Not Recovered/Not Resolved]
  - Bradykinesia [Recovered/Resolved]

NARRATIVE: CASE EVENT DATE: 20210209
